FAERS Safety Report 23748620 (Version 3)
Quarter: 2024Q2

REPORT INFORMATION
  Report Type: Spontaneous
  Country: US (occurrence: US)
  Receive Date: 20240416
  Receipt Date: 20240618
  Transmission Date: 20240716
  Serious: Yes (Hospitalization, Other)
  Sender: FDA-Public Use
  Company Number: US-SA-SAC20240412000093

PATIENT
  Age: 65 Year
  Sex: Female

DRUGS (3)
  1. DUPIXENT [Suspect]
     Active Substance: DUPILUMAB
     Indication: Idiopathic urticaria
     Dosage: 300 MG, QOW
     Route: 058
     Dates: start: 201910
  2. DUPIXENT [Suspect]
     Active Substance: DUPILUMAB
     Indication: Dermatitis atopic
     Dosage: 300 MG, QOW
     Route: 058
     Dates: start: 202312, end: 20240315
  3. PREDNISONE [Concomitant]
     Active Substance: PREDNISONE
     Dosage: UNK UNK, PRN

REACTIONS (15)
  - Intellectual disability [Unknown]
  - Gait disturbance [Unknown]
  - Paraesthesia [Unknown]
  - Muscular weakness [Unknown]
  - Pruritus [Unknown]
  - Drug hypersensitivity [Unknown]
  - Dysphonia [Unknown]
  - Decreased appetite [Unknown]
  - Feeling abnormal [Unknown]
  - Speech disorder [Unknown]
  - Purpura senile [Unknown]
  - Dizziness [Unknown]
  - Myalgia [Unknown]
  - Rash [Unknown]
  - Product use in unapproved indication [Unknown]

NARRATIVE: CASE EVENT DATE: 20240312
